FAERS Safety Report 12509623 (Version 1)
Quarter: 2016Q2

REPORT INFORMATION
  Report Type: Spontaneous
  Country: US (occurrence: US)
  Receive Date: 20160629
  Receipt Date: 20160629
  Transmission Date: 20160815
  Serious: No
  Sender: FDA-Public Use
  Company Number: US-009507513-1606USA005875

PATIENT
  Age: 75 Year
  Sex: Female

DRUGS (1)
  1. DULERA [Suspect]
     Active Substance: FORMOTEROL FUMARATE DIHYDRATE\MOMETASONE FUROATE
     Indication: ASTHMA
     Dosage: UNK
     Route: 048
     Dates: start: 201506, end: 201512

REACTIONS (5)
  - Bone disorder [Unknown]
  - Irritability [Unknown]
  - Agitation [Unknown]
  - Wrist fracture [Unknown]
  - Insomnia [Unknown]
